FAERS Safety Report 9472413 (Version 1)
Quarter: 2013Q3

REPORT INFORMATION
  Report Type: Spontaneous
  Country: DE (occurrence: DE)
  Receive Date: 20130823
  Receipt Date: 20130823
  Transmission Date: 20140515
  Serious: Yes (Hospitalization, Congenital Anomaly, Other)
  Sender: FDA-Public Use
  Company Number: DE-MYLANLABS-2013S1017831

PATIENT
  Sex: Male
  Weight: 2.8 kg

DRUGS (2)
  1. MIRTAZAPIN [Suspect]
     Dosage: 30 [MG/D ]
     Route: 064
  2. FOLSAN [Concomitant]
     Route: 064

REACTIONS (7)
  - Congenital diaphragmatic hernia [Recovered/Resolved with Sequelae]
  - Hypospadias [Unknown]
  - Cryptorchism [Recovering/Resolving]
  - Inguinal hernia [Unknown]
  - Patent ductus arteriosus [Recovered/Resolved]
  - Small for dates baby [Unknown]
  - Exposure during pregnancy [Recovered/Resolved]
